FAERS Safety Report 4364995-7 (Version None)
Quarter: 2004Q2

REPORT INFORMATION
  Report Type: 
  Country: None (occurrence: None)
  Receive Date: 20040521
  Receipt Date: 20040505
  Transmission Date: 20050107
  Serious: Yes (Death)
  Sender: FDA-Public Use
  Company Number: GBS040514879

PATIENT
  Age: 17 Year

DRUGS (1)
  1. XIGRIS [Suspect]

REACTIONS (1)
  - CARDIAC VALVE VEGETATION [None]
